FAERS Safety Report 12128105 (Version 1)
Quarter: 2016Q1

REPORT INFORMATION
  Report Type: Spontaneous
  Country: US (occurrence: CA)
  Receive Date: 20160229
  Receipt Date: 20160229
  Transmission Date: 20160526
  Serious: Yes (Other)
  Sender: FDA-Public Use
  Company Number: CA-BEUTLICH PHARMACEUTICALS, LLC-1048496

PATIENT

DRUGS (1)
  1. HURRICAINE TOPICAL ANESTHETIC SPRAY [Suspect]
     Active Substance: BENZOCAINE
     Indication: ORAL PAIN
     Route: 048
     Dates: start: 20160119, end: 20160119

REACTIONS (3)
  - Dyspnoea [Recovered/Resolved]
  - Dizziness [None]
  - Skin discolouration [None]

NARRATIVE: CASE EVENT DATE: 20160119
